FAERS Safety Report 16741329 (Version 1)
Quarter: 2019Q3

REPORT INFORMATION
  Report Type: Spontaneous
  Country: GB (occurrence: GB)
  Receive Date: 20190826
  Receipt Date: 20190826
  Transmission Date: 20191005
  Serious: Yes (Hospitalization)
  Sender: FDA-Public Use
  Company Number: GB-US WORLDMEDS, LLC-E2B_00003062

PATIENT
  Age: 80 Year
  Sex: Female

DRUGS (9)
  1. SINEMET [Concomitant]
     Active Substance: CARBIDOPA\LEVODOPA
  2. ATORVASTATIN [Concomitant]
     Active Substance: ATORVASTATIN
  3. SAFINAMIDE [Suspect]
     Active Substance: SAFINAMIDE
     Indication: PARKINSON^S DISEASE
     Dosage: UNKNOWN
     Route: 048
  4. LACTULOSE. [Concomitant]
     Active Substance: LACTULOSE
  5. ZOPICLONE [Concomitant]
     Active Substance: ZOPICLONE
  6. MIRTAZAPINE. [Concomitant]
     Active Substance: MIRTAZAPINE
  7. ADCAL                              /07357001/ [Concomitant]
     Active Substance: CALCIUM CARBONATE
  8. ZAPAIN [Concomitant]
     Active Substance: ACETAMINOPHEN\CODEINE PHOSPHATE
  9. AMANTADINE. [Concomitant]
     Active Substance: AMANTADINE HYDROCHLORIDE

REACTIONS (1)
  - Abdominal pain [Unknown]
